FAERS Safety Report 16755294 (Version 2)
Quarter: 2019Q3

REPORT INFORMATION
  Report Type: Report from Study
  Country: US (occurrence: US)
  Receive Date: 20190829
  Receipt Date: 20190909
  Transmission Date: 20191005
  Serious: Yes (Hospitalization, Other)
  Sender: FDA-Public Use
  Company Number: US-BAYER-2019-157300

PATIENT
  Age: 79 Year
  Sex: Female
  Weight: 59.86 kg

DRUGS (3)
  1. ORENITRAM [Suspect]
     Active Substance: TREPROSTINIL
     Dosage: 1.875 MG, Q8HR
     Route: 048
     Dates: start: 20190330
  2. ELIQUIS [Concomitant]
     Active Substance: APIXABAN
  3. ADEMPAS [Suspect]
     Active Substance: RIOCIGUAT
     Indication: PULMONARY ARTERIAL HYPERTENSION
     Dosage: 0.5 MG, TID
     Route: 048
     Dates: start: 20190808

REACTIONS (12)
  - Dizziness [Unknown]
  - Delirium [None]
  - Food refusal [None]
  - Headache [Unknown]
  - Adverse event [Unknown]
  - Insomnia [None]
  - Incoherent [Not Recovered/Not Resolved]
  - Fall [Unknown]
  - Catatonia [None]
  - Auditory disorder [Not Recovered/Not Resolved]
  - Asthenia [None]
  - Disorientation [None]

NARRATIVE: CASE EVENT DATE: 2019
